FAERS Safety Report 4590671-1 (Version None)
Quarter: 2005Q1

REPORT INFORMATION
  Report Type: 
  Country: None (occurrence: None)
  Receive Date: 20050224
  Receipt Date: 20050216
  Transmission Date: 20050727
  Serious: Yes (Life-Threatening, Other)
  Sender: FDA-Public Use
  Company Number: US-ABBOTT-05P-163-0290929-00

PATIENT
  Sex: Female
  Weight: 106.5 kg

DRUGS (2)
  1. DILAUDID [Suspect]
     Indication: BACK PAIN
     Route: 048
     Dates: start: 20030728, end: 20030728
  2. DIAZEPAM [Concomitant]
     Indication: BACK PAIN
     Dosage: 2 DOSES
     Route: 048
     Dates: start: 20030728, end: 20030728

REACTIONS (6)
  - AMNESIA [None]
  - COLD SWEAT [None]
  - FEELING COLD [None]
  - LOSS OF CONSCIOUSNESS [None]
  - SLUGGISHNESS [None]
  - VOMITING [None]
